FAERS Safety Report 6321452-6 (Version None)
Quarter: 2009Q3

REPORT INFORMATION
  Report Type: 
  Country: None (occurrence: None)
  Receive Date: 20090822
  Receipt Date: 20090130
  Transmission Date: 20100115
  Serious: No
  Sender: FDA-Public Use
  Company Number: US-ABBOTT-09P-163-0501339-00

PATIENT
  Sex: Female
  Weight: 83.99 kg

DRUGS (6)
  1. NIASPAN [Suspect]
     Indication: BLOOD CHOLESTEROL INCREASED
     Dates: start: 20081218, end: 20090110
  2. BENICAR HCT [Concomitant]
     Indication: HYPERTENSION
  3. LEVOXYL [Concomitant]
     Indication: HYPOTHYROIDISM
  4. ARAVA [Concomitant]
     Indication: RHEUMATOID ARTHRITIS
  5. VITAMIN B-12 [Concomitant]
     Indication: DRUG USE FOR UNKNOWN INDICATION
     Route: 030
  6. FISH OIL [Concomitant]
     Indication: DRUG USE FOR UNKNOWN INDICATION

REACTIONS (6)
  - BLOOD GLUCOSE DECREASED [None]
  - BLOOD PRESSURE DECREASED [None]
  - BURNING SENSATION [None]
  - FATIGUE [None]
  - SYNCOPE [None]
  - URTICARIA [None]
